FAERS Safety Report 17930644 (Version 4)
Quarter: 2020Q4

REPORT INFORMATION
  Report Type: Report from Study
  Country: US (occurrence: US)
  Receive Date: 20200623
  Receipt Date: 20201117
  Transmission Date: 20210113
  Serious: No
  Sender: FDA-Public Use
  Company Number: NVSC2020US176255

PATIENT
  Age: 67 Year
  Sex: Male

DRUGS (1)
  1. ENTRESTO [Suspect]
     Active Substance: SACUBITRIL\VALSARTAN
     Indication: CARDIAC FAILURE
     Dosage: 100 MG (49.51 MG), BID
     Route: 048
     Dates: start: 202002

REACTIONS (8)
  - Pain [Recovering/Resolving]
  - Weight decreased [Unknown]
  - Abdominal distension [Unknown]
  - Gait inability [Recovering/Resolving]
  - Gastritis [Unknown]
  - Renal pain [Unknown]
  - Sunburn [Recovering/Resolving]
  - Back injury [Recovering/Resolving]

NARRATIVE: CASE EVENT DATE: 202006
